FAERS Safety Report 15853775 (Version 1)
Quarter: 2019Q1

REPORT INFORMATION
  Report Type: Spontaneous
  Country: US (occurrence: US)
  Receive Date: 20190121
  Receipt Date: 20190121
  Transmission Date: 20190417
  Serious: Yes (Other)
  Sender: FDA-Public Use
  Company Number: None

PATIENT
  Age: 16 Year
  Sex: Male
  Weight: 65.8 kg

DRUGS (2)
  1. INFLIXIMAB [Suspect]
     Active Substance: INFLIXIMAB
     Indication: CROHN^S DISEASE
     Dosage: ?          OTHER FREQUENCY:EVERY 6 WEEKS;?
     Route: 042
     Dates: start: 20110628, end: 20181220
  2. METHOTREXATE. [Concomitant]
     Active Substance: METHOTREXATE
     Dates: start: 20140428, end: 20170828

REACTIONS (7)
  - Gastric polyps [None]
  - Crohn^s disease [None]
  - B-cell lymphoma [None]
  - Enterocolitis [None]
  - Cryptitis [None]
  - Gastrooesophageal reflux disease [None]
  - Gastritis [None]

NARRATIVE: CASE EVENT DATE: 20181214
